FAERS Safety Report 15981371 (Version 2)
Quarter: 2019Q1

REPORT INFORMATION
  Report Type: Report from Study
  Country: CO (occurrence: CO)
  Receive Date: 20190219
  Receipt Date: 20190330
  Transmission Date: 20190418
  Serious: Yes (Hospitalization, Other)
  Sender: FDA-Public Use
  Company Number: PHHY2019CO027807

PATIENT
  Sex: Male
  Weight: 76 kg

DRUGS (4)
  1. MEKINIST [Suspect]
     Active Substance: TRAMETINIB DIMETHYL SULFOXIDE
     Dosage: 2 MG, QD
     Route: 048
     Dates: start: 20180816, end: 20190320
  2. TAFINLAR [Suspect]
     Active Substance: DABRAFENIB MESYLATE
     Indication: METASTATIC MALIGNANT MELANOMA
     Dosage: 300 MG, QD
     Route: 048
     Dates: start: 201807
  3. MEKINIST [Suspect]
     Active Substance: TRAMETINIB DIMETHYL SULFOXIDE
     Indication: METASTATIC MALIGNANT MELANOMA
     Dosage: 2 MG, QD
     Route: 048
     Dates: start: 201807
  4. TAFINLAR [Suspect]
     Active Substance: DABRAFENIB MESYLATE
     Dosage: 300 MG, QD
     Route: 048
     Dates: start: 20180816, end: 20190320

REACTIONS (10)
  - Feeling of despair [Unknown]
  - Infection [Unknown]
  - Malaise [Unknown]
  - Drug ineffective [Unknown]
  - Malignant melanoma [Unknown]
  - Tumour inflammation [Unknown]
  - Decreased appetite [Unknown]
  - Recurrent cancer [Unknown]
  - Metastases to neck [Unknown]
  - Inappropriate schedule of product administration [Unknown]
